FAERS Safety Report 4340286-5 (Version None)
Quarter: 2004Q2

REPORT INFORMATION
  Report Type: 
  Country: None (occurrence: None)
  Receive Date: 20040412
  Receipt Date: 20040329
  Transmission Date: 20050107
  Serious: Yes (Death, Other)
  Sender: FDA-Public Use
  Company Number: 2004020965

PATIENT
  Sex: Male

DRUGS (2)
  1. FLUCONAZOLE [Suspect]
     Indication: FUNGAL SKIN INFECTION
     Dosage: 150 MG (ONCE A WEEK), ORAL
     Route: 048
  2. GLYBURIDE [Concomitant]

REACTIONS (1)
  - HYPOGLYCAEMIC COMA [None]
